FAERS Safety Report 25412441 (Version 1)
Quarter: 2025Q2

REPORT INFORMATION
  Report Type: Spontaneous
  Country: TH (occurrence: TH)
  Receive Date: 20250609
  Receipt Date: 20250609
  Transmission Date: 20250716
  Serious: Yes (Other)
  Sender: GUERBET
  Company Number: TH-GUERBETG-TH-20250033

PATIENT
  Age: 63 Year
  Sex: Male

DRUGS (2)
  1. LIPIODOL [Suspect]
     Active Substance: ETHIODIZED OIL
     Indication: Transcatheter arterial chemoembolisation
     Dosage: 8 ML OF 20 MG MITOMYCIN-C IN UNSPECIFIED CONTRAST MEDIA AND LIPIODOL.
     Route: 013
  2. MITOMYCIN C [Suspect]
     Active Substance: MITOMYCIN
     Indication: Transcatheter arterial chemoembolisation
     Route: 013

REACTIONS (2)
  - Spinal cord infarction [Recovering/Resolving]
  - Embolism [Recovering/Resolving]
